FAERS Safety Report 10289335 (Version 1)
Quarter: 2014Q3

REPORT INFORMATION
  Report Type: Spontaneous
  Country: US (occurrence: US)
  Receive Date: 20140710
  Receipt Date: 20140710
  Transmission Date: 20150326
  Serious: No
  Sender: FDA-Public Use
  Company Number: US-BIOGENIDEC-2014BI061057

PATIENT
  Age: 56 Year
  Sex: Female

DRUGS (3)
  1. TECFIDERA [Suspect]
     Active Substance: DIMETHYL FUMARATE
     Indication: RELAPSING-REMITTING MULTIPLE SCLEROSIS
     Dates: start: 20130610
  2. TECFIDERA [Suspect]
     Active Substance: DIMETHYL FUMARATE
     Indication: RELAPSING-REMITTING MULTIPLE SCLEROSIS
     Route: 048
     Dates: start: 2013
  3. AMPYRA [Concomitant]
     Active Substance: DALFAMPRIDINE

REACTIONS (7)
  - Cognitive disorder [Not Recovered/Not Resolved]
  - General symptom [Unknown]
  - Confusional state [Not Recovered/Not Resolved]
  - Central nervous system lesion [Not Recovered/Not Resolved]
  - Lethargy [Not Recovered/Not Resolved]
  - Fall [Recovered/Resolved]
  - Impaired self-care [Not Recovered/Not Resolved]

NARRATIVE: CASE EVENT DATE: 201405
